FAERS Safety Report 13880023 (Version 1)
Quarter: 2017Q3

REPORT INFORMATION
  Report Type: Spontaneous
  Country: US (occurrence: US)
  Receive Date: 20170815
  Receipt Date: 20170815
  Transmission Date: 20171127
  Serious: Yes (Life-Threatening, Hospitalization, Other)
  Sender: FDA-Public Use
  Company Number: None

PATIENT
  Age: 68 Year
  Sex: Female

DRUGS (4)
  1. PROPANOL LA [Concomitant]
  2. LISINIPRIL [Concomitant]
     Active Substance: LISINOPRIL
  3. CIPROFLOXACIN HCL DR. REDDY^S LA [Suspect]
     Active Substance: CIPROFLOXACIN HYDROCHLORIDE
     Indication: URINARY TRACT INFECTION
     Dosage: ?          QUANTITY:1 TABLET(S);?
     Route: 048
     Dates: start: 20170808, end: 20170812
  4. THYROXINE [Concomitant]
     Active Substance: LEVOTHYROXINE

REACTIONS (5)
  - Myalgia [None]
  - Arthralgia [None]
  - Pain [None]
  - Gait inability [None]
  - Ligament pain [None]

NARRATIVE: CASE EVENT DATE: 20170812
